FAERS Safety Report 10089712 (Version 2)
Quarter: 2014Q2

REPORT INFORMATION
  Report Type: Report from Study
  Country: JP (occurrence: JP)
  Receive Date: 20140421
  Receipt Date: 20140522
  Transmission Date: 20141212
  Serious: No
  Sender: FDA-Public Use
  Company Number: JP-ASTELLAS-2014JP003290

PATIENT
  Age: 76 Year
  Sex: Male

DRUGS (2)
  1. MIRABEGRON [Suspect]
     Route: 048
     Dates: start: 20131214
  2. EVIPROSTAT                         /00833501/ [Concomitant]
     Indication: PRODUCT USED FOR UNKNOWN INDICATION
     Dosage: UNK UNK, UNKNOWN FREQ.
     Route: 048
     Dates: start: 20131214

REACTIONS (1)
  - Electrocardiogram QT prolonged [Unknown]
